FAERS Safety Report 14107786 (Version 1)
Quarter: 2017Q4

REPORT INFORMATION
  Report Type: Spontaneous
  Country: US (occurrence: US)
  Receive Date: 20171019
  Receipt Date: 20171019
  Transmission Date: 20180321
  Serious: Yes (Other)
  Sender: FDA-Public Use
  Company Number: US-BAYER-2017-193523

PATIENT
  Sex: Male

DRUGS (1)
  1. ALKA-SELTZER ORIGINAL [Suspect]
     Active Substance: ANHYDROUS CITRIC ACID\ASPIRIN\SODIUM BICARBONATE
     Dosage: 6 DF, QD
     Route: 048

REACTIONS (3)
  - Drug dependence [Unknown]
  - Incorrect dosage administered [Unknown]
  - Incorrect drug administration duration [Unknown]
